FAERS Safety Report 5484808-X (Version None)
Quarter: 2007Q4

REPORT INFORMATION
  Report Type: 
  Country: None (occurrence: None)
  Receive Date: 20071012
  Receipt Date: 20071001
  Transmission Date: 20080405
  Serious: Yes (Life-Threatening, Hospitalization)
  Sender: FDA-Public Use
  Company Number: JP-PFIZER INC-2007083515

PATIENT
  Age: 62 Year
  Sex: Female

DRUGS (3)
  1. ALDACTONE [Suspect]
     Indication: CARDIAC FAILURE
     Dosage: DAILY DOSE:25MG
     Route: 048
     Dates: start: 20010101, end: 20070926
  2. NU LOTAN [Concomitant]
     Route: 048
  3. MERCAZOLE [Concomitant]
     Route: 048

REACTIONS (2)
  - DEEP VEIN THROMBOSIS [None]
  - PULMONARY EMBOLISM [None]
